FAERS Safety Report 9038872 (Version 1)
Quarter: 2013Q1

REPORT INFORMATION
  Report Type: Spontaneous
  Country: US (occurrence: None)
  Receive Date: 20130123
  Receipt Date: 20130123
  Transmission Date: 20140127
  Serious: Yes (Life-Threatening)
  Sender: FDA-Public Use
  Company Number: None

PATIENT
  Age: 71 Year
  Sex: Male
  Weight: 54.43 kg

DRUGS (1)
  1. PRADAXA [Suspect]
     Indication: IMPLANTABLE DEFIBRILLATOR INSERTION

REACTIONS (2)
  - Haemorrhage [None]
  - Blood count abnormal [None]
